FAERS Safety Report 5403687-X (Version None)
Quarter: 2007Q3

REPORT INFORMATION
  Report Type: 
  Country: None (occurrence: None)
  Receive Date: 20070713
  Receipt Date: 20070405
  Transmission Date: 20080115
  Serious: Yes (Hospitalization)
  Sender: FDA-Public Use
  Company Number: REM_00337_2007 (0)

PATIENT
  Age: 57 Year
  Sex: Female
  Weight: 80.9 kg

DRUGS (20)
  1. REMODULIN [Suspect]
     Indication: PULMONARY HYPERTENSION
     Dosage: (0.051 UG/KG, 1 IN 1 MIN), INTRAVENOUS
     Route: 042
     Dates: start: 20060223
  2. FENTANYL (FENTANYL) (POULTICE OR PATCH) [Concomitant]
  3. HYDROXYCHLOROQUINE SULFATE [Concomitant]
  4. PLAVIX [Concomitant]
  5. REVATIO [Concomitant]
  6. ALBUTEROL [Concomitant]
  7. NITROGLYCERIN [Concomitant]
  8. COUMADIN [Concomitant]
  9. IMODIUM /00384302/ (LOPERAMIDE HYDROCHLORIDE) [Concomitant]
  10. COREG (CARVEDIOLOL) [Concomitant]
  11. LASIX [Concomitant]
  12. VALIUM /00017001/ (DIAZEPAM) [Concomitant]
  13. SPIRONOLACTONE [Concomitant]
  14. K-DUR 10 [Concomitant]
  15. TYLENOL WITH CODEINE NO.4 (PANADEINE CO) [Concomitant]
  16. DIGOXIN [Concomitant]
  17. NORVASC [Concomitant]
  18. ZETIA [Concomitant]
  19. COLCHICUM JTL LIQ [Concomitant]
  20. OXYCODONE AND ACETAMINOPHEN [Concomitant]

REACTIONS (2)
  - BACTERIAL INFECTION [None]
  - CATHETER RELATED INFECTION [None]
